FAERS Safety Report 22093565 (Version 1)
Quarter: 2023Q1

REPORT INFORMATION
  Report Type: Spontaneous
  Country: US (occurrence: None)
  Receive Date: 20230313
  Receipt Date: 20230313
  Transmission Date: 20230417
  Serious: Yes (Other)
  Sender: FDA-Public Use
  Company Number: None

PATIENT
  Sex: Male

DRUGS (1)
  1. ACETAMINOPHEN\OXYCODONE HYDROCHLORIDE [Suspect]
     Active Substance: ACETAMINOPHEN\OXYCODONE HYDROCHLORIDE
     Indication: Pain
     Dates: start: 20230307

REACTIONS (10)
  - Product substitution issue [None]
  - Tremor [None]
  - Paraesthesia [None]
  - Limb discomfort [None]
  - Palpitations [None]
  - Dizziness [None]
  - Drug ineffective [None]
  - Intentional product use issue [None]
  - Product formulation issue [None]
  - Blood pressure increased [None]

NARRATIVE: CASE EVENT DATE: 20230307
